FAERS Safety Report 19945041 (Version 2)
Quarter: 2021Q4

REPORT INFORMATION
  Report Type: Report from Study
  Country: JP (occurrence: JP)
  Receive Date: 20211011
  Receipt Date: 20211211
  Transmission Date: 20220304
  Serious: Yes (Death)
  Sender: FDA-Public Use
  Company Number: JP-BAYER-2021A222602

PATIENT
  Age: 81 Year
  Sex: Female

DRUGS (19)
  1. VENTAVIS [Suspect]
     Active Substance: ILOPROST
     Indication: Pulmonary arterial hypertension
     Route: 065
     Dates: start: 20210611, end: 20210722
  2. VENTAVIS [Suspect]
     Active Substance: ILOPROST
     Indication: CREST syndrome
  3. TOLVAPTAN [Concomitant]
     Active Substance: TOLVAPTAN
     Route: 048
     Dates: end: 20210722
  4. ADCIRCA [Concomitant]
     Active Substance: TADALAFIL
     Indication: Pulmonary arterial hypertension
     Route: 048
     Dates: end: 20210722
  5. ADCIRCA [Concomitant]
     Active Substance: TADALAFIL
     Indication: CREST syndrome
  6. OPSUMIT [Concomitant]
     Active Substance: MACITENTAN
     Indication: Pulmonary arterial hypertension
     Route: 048
     Dates: end: 20210722
  7. OPSUMIT [Concomitant]
     Active Substance: MACITENTAN
     Indication: CREST syndrome
  8. AZOSEMIDE [Concomitant]
     Active Substance: AZOSEMIDE
     Route: 048
     Dates: end: 20210722
  9. UPTRAVI [Concomitant]
     Active Substance: SELEXIPAG
     Indication: Pulmonary arterial hypertension
     Route: 048
     Dates: end: 20210722
  10. UPTRAVI [Concomitant]
     Active Substance: SELEXIPAG
     Indication: CREST syndrome
  11. CALONAL [Concomitant]
     Active Substance: ACETAMINOPHEN
     Route: 048
     Dates: end: 20210722
  12. BROTIZOLAM [Concomitant]
     Active Substance: BROTIZOLAM
     Indication: Prophylaxis
     Route: 048
  13. MORPHINE HYDROCHLORIDE [Concomitant]
     Active Substance: MORPHINE HYDROCHLORIDE
     Indication: Prophylaxis
     Route: 048
     Dates: start: 20210710, end: 20210722
  14. OXYGEN [Concomitant]
     Active Substance: OXYGEN
     Indication: Pulmonary arterial hypertension
     Dosage: 8 L/MIN
     Dates: start: 20201108
  15. OXYGEN [Concomitant]
     Active Substance: OXYGEN
     Indication: CREST syndrome
     Dosage: 8 L/MIN
     Dates: start: 20210610
  16. OXYGEN [Concomitant]
     Active Substance: OXYGEN
     Dosage: 7 L/MIN
     Dates: start: 20210612
  17. OXYGEN [Concomitant]
     Active Substance: OXYGEN
     Dosage: 6 L/MIN
     Dates: start: 20210622
  18. OXYGEN [Concomitant]
     Active Substance: OXYGEN
     Dosage: 5 L/MIN
     Dates: start: 20210702
  19. OXYGEN [Concomitant]
     Active Substance: OXYGEN
     Dosage: 6 L/MIN
     Dates: start: 20210720

REACTIONS (1)
  - Pulmonary arterial hypertension [Fatal]

NARRATIVE: CASE EVENT DATE: 20210704
